FAERS Safety Report 5701817-3 (Version None)
Quarter: 2008Q2

REPORT INFORMATION
  Report Type: 
  Country: None (occurrence: None)
  Receive Date: 20080410
  Receipt Date: 20080410
  Transmission Date: 20081010
  Serious: Yes (Other)
  Sender: FDA-Public Use
  Company Number: None

PATIENT
  Age: 36 Year
  Sex: Male
  Weight: 68.0396 kg

DRUGS (1)
  1. SINGULAIR [Suspect]
     Indication: HYPERSENSITIVITY
     Dosage: 1 DAILY

REACTIONS (4)
  - EMOTIONAL DISORDER [None]
  - FEELING ABNORMAL [None]
  - SUICIDAL IDEATION [None]
  - THINKING ABNORMAL [None]
